FAERS Safety Report 5335355-7 (Version None)
Quarter: 2007Q2

REPORT INFORMATION
  Report Type: 
  Country: None (occurrence: None)
  Receive Date: 20070321
  Receipt Date: 20070122
  Transmission Date: 20071010
  Serious: Yes (Disabling)
  Sender: FDA-Public Use
  Company Number: A03200700731

PATIENT
  Age: 76 Year
  Sex: Male

DRUGS (3)
  1. ELIGARD [Suspect]
     Indication: DRUG USE FOR UNKNOWN INDICATION
     Dosage: 7.5 MG ONCE - SUBCUTANEOUS
     Route: 058
     Dates: start: 20060313, end: 20060313
  2. ELIGARD [Suspect]
     Indication: DRUG USE FOR UNKNOWN INDICATION
     Dosage: 22.5 MG ONCE - SUBCUTANEOUS
     Route: 058
     Dates: start: 20060406, end: 20060406
  3. ELIGARD [Suspect]
     Indication: DRUG USE FOR UNKNOWN INDICATION
     Dosage: 22.5 MG ONCE - SUBCUTANEOUS
     Route: 058
     Dates: start: 20060630, end: 20060630

REACTIONS (1)
  - MUSCULAR WEAKNESS [None]
